FAERS Safety Report 6007179-9 (Version None)
Quarter: 2008Q4

REPORT INFORMATION
  Report Type: 
  Country: None (occurrence: None)
  Receive Date: 20081217
  Receipt Date: 20081212
  Transmission Date: 20090506
  Serious: Yes (Other)
  Sender: FDA-Public Use
  Company Number: DE-ASTRAZENECA-2008PK02709

PATIENT
  Age: 607 Month
  Sex: Male

DRUGS (1)
  1. CARBOSTESIN [Suspect]
     Indication: LOCAL ANAESTHESIA
     Route: 058

REACTIONS (1)
  - INJECTION SITE NECROSIS [None]
